FAERS Safety Report 5736507-4 (Version None)
Quarter: 2008Q2

REPORT INFORMATION
  Report Type: 
  Country: None (occurrence: None)
  Receive Date: 20080513
  Receipt Date: 20080502
  Transmission Date: 20081010
  Serious: Yes (Life-Threatening)
  Sender: FDA-Public Use
  Company Number: GB-ELI_LILLY_AND_COMPANY-GB200805000385

PATIENT
  Age: 46 Year
  Sex: Female

DRUGS (3)
  1. CYMBALTA [Suspect]
     Indication: DEPRESSION
     Dosage: 60 MG, UNKNOWN
     Route: 048
     Dates: start: 20071210, end: 20080220
  2. FLUOXETINE [Concomitant]
     Indication: DEPRESSION
     Dosage: 60 MG, UNKNOWN
     Route: 048
     Dates: start: 20070301, end: 20071101
  3. REBOXETINE [Concomitant]
     Indication: DEPRESSION
     Dosage: 4 MG, 2/D
     Route: 048
     Dates: start: 20070801, end: 20071101

REACTIONS (2)
  - CONDITION AGGRAVATED [None]
  - SUICIDAL BEHAVIOUR [None]
